FAERS Safety Report 11793689 (Version 1)
Quarter: 2015Q4

REPORT INFORMATION
  Report Type: Spontaneous
  Country: US (occurrence: None)
  Receive Date: 20151201
  Receipt Date: 20151201
  Transmission Date: 20160305
  Serious: Yes (Hospitalization)
  Sender: FDA-Public Use
  Company Number: None

PATIENT
  Age: 75 Year
  Sex: Female
  Weight: 56.7 kg

DRUGS (5)
  1. PROLIA [Suspect]
     Active Substance: DENOSUMAB
     Indication: BONE DISORDER
     Dosage: TWICE YEARLY
     Dates: start: 201502
  2. LIPITOR [Concomitant]
     Active Substance: ATORVASTATIN CALCIUM
  3. INDERAL [Concomitant]
     Active Substance: PROPRANOLOL HYDROCHLORIDE
  4. ONE-A-DAY [Concomitant]
  5. CALCIUM [Concomitant]
     Active Substance: CALCIUM

REACTIONS (1)
  - Femur fracture [None]

NARRATIVE: CASE EVENT DATE: 20151010
